FAERS Safety Report 8776882 (Version 2)
Quarter: 2012Q4

REPORT INFORMATION
  Report Type: 
  Country: US (occurrence: US)
  Receive Date: 20120911
  Receipt Date: 20121004
  Transmission Date: 20130627
  Serious: Yes (Other)
  Sender: FDA-Public Use
  Company Number: US-JNJFOC-20120901894

PATIENT

DRUGS (2)
  1. NUCYNTA IR [Suspect]
     Indication: PAIN
     Route: 065
  2. TRAMADOL [Suspect]
     Indication: PAIN
     Route: 065

REACTIONS (7)
  - Coma [Unknown]
  - Respiratory depression [Unknown]
  - Convulsion [Unknown]
  - Hallucination [Unknown]
  - Dysarthria [Unknown]
  - Sedation [Unknown]
  - Confusional state [Unknown]
